FAERS Safety Report 5988252-8 (Version None)
Quarter: 2008Q4

REPORT INFORMATION
  Report Type: 
  Country: None (occurrence: None)
  Receive Date: 20081204
  Receipt Date: 20081119
  Transmission Date: 20090506
  Serious: Yes (Hospitalization)
  Sender: FDA-Public Use
  Company Number: KV200800331

PATIENT
  Age: 59 Year
  Sex: Female
  Weight: 86.2 kg

DRUGS (3)
  1. MORPHINE SULFATE [Suspect]
     Indication: NEURALGIA
     Dosage: ONE TAB, TID
     Dates: start: 20080708, end: 20080721
  2. HEART MEDICATIONS [Concomitant]
  3. ALEVE (CAPLET) [Concomitant]

REACTIONS (7)
  - DIARRHOEA [None]
  - HEPATIC ENZYME INCREASED [None]
  - HEPATOMEGALY [None]
  - NO REACTION ON PREVIOUS EXPOSURE TO DRUG [None]
  - PANCREATIC ENLARGEMENT [None]
  - PRODUCT QUALITY ISSUE [None]
  - WEIGHT DECREASED [None]
